FAERS Safety Report 9463701 (Version 1)
Quarter: 2013Q3

REPORT INFORMATION
  Report Type: Spontaneous
  Country: BR (occurrence: BR)
  Receive Date: 20130819
  Receipt Date: 20130819
  Transmission Date: 20140515
  Serious: Yes (Other)
  Sender: FDA-Public Use
  Company Number: PHHY2013BR088884

PATIENT
  Age: 27 Year
  Sex: Male

DRUGS (1)
  1. RITALINA [Suspect]
     Dosage: 10 MG, UNK
     Dates: start: 20130812

REACTIONS (4)
  - Panic attack [Unknown]
  - Depression [Unknown]
  - Incorrect route of drug administration [Unknown]
  - Wrong technique in drug usage process [Unknown]
